FAERS Safety Report 8530815-X (Version None)
Quarter: 2012Q3

REPORT INFORMATION
  Report Type: 
  Country: None (occurrence: None)
  Receive Date: 20120723
  Receipt Date: 20120717
  Transmission Date: 20120928
  Serious: Yes (Hospitalization, Other)
  Sender: FDA-Public Use
  Company Number: US-PFIZER INC-2012172849

PATIENT
  Sex: Female
  Weight: 51.701 kg

DRUGS (6)
  1. PRISTIQ [Suspect]
     Indication: BIPOLAR DISORDER
  2. PRISTIQ [Suspect]
     Indication: BIPOLAR I DISORDER
     Dosage: UNK, 3X/DAY
     Route: 048
     Dates: start: 20110901, end: 20111001
  3. PRISTIQ [Suspect]
     Indication: DEPRESSION
  4. ABILIFY [Suspect]
     Indication: BIPOLAR DISORDER
  5. ABILIFY [Suspect]
     Indication: BIPOLAR I DISORDER
     Dosage: 5 MG, 2X/DAY
     Route: 048
     Dates: start: 20111201, end: 20120101
  6. ABILIFY [Suspect]
     Indication: DEPRESSION

REACTIONS (1)
  - BIPOLAR DISORDER [None]
